FAERS Safety Report 22104940 (Version 2)
Quarter: 2023Q2

REPORT INFORMATION
  Report Type: Spontaneous
  Country: US (occurrence: US)
  Receive Date: 20230316
  Receipt Date: 20230405
  Transmission Date: 20230722
  Serious: No
  Sender: FDA-Public Use
  Company Number: US-IDORSIA-003900-2023-US

PATIENT
  Age: 65 Year
  Sex: Female

DRUGS (2)
  1. QUVIVIQ [Suspect]
     Active Substance: DARIDOREXANT
     Indication: Insomnia
     Dosage: 25 MG, QD
     Route: 048
     Dates: start: 20230301, end: 20230302
  2. CLONIDINE [Concomitant]
     Active Substance: CLONIDINE
     Dosage: 0.1 MG

REACTIONS (6)
  - Blood pressure increased [Recovered/Resolved]
  - Palpitations [Recovered/Resolved]
  - Hypervigilance [Recovered/Resolved]
  - Hallucination [Recovered/Resolved]
  - Product packaging difficult to open [Unknown]
  - Insomnia [Unknown]

NARRATIVE: CASE EVENT DATE: 20230301
